FAERS Safety Report 9751072 (Version 2)
Quarter: 2013Q4

REPORT INFORMATION
  Report Type: Spontaneous
  Country: US (occurrence: US)
  Receive Date: 20131212
  Receipt Date: 20131213
  Transmission Date: 20140711
  Serious: Yes (Other)
  Sender: FDA-Public Use
  Company Number: US-TEVA-401061USA

PATIENT
  Age: 31 Year
  Sex: Female
  Weight: 61.29 kg

DRUGS (1)
  1. PARAGARD 380A [Suspect]
     Indication: CONTRACEPTION
     Dates: start: 20130328, end: 20130423

REACTIONS (3)
  - Embedded device [Recovered/Resolved]
  - Device expulsion [Recovered/Resolved]
  - Vulvovaginal pain [Recovered/Resolved]
